FAERS Safety Report 16004428 (Version 1)
Quarter: 2019Q1

REPORT INFORMATION
  Report Type: Spontaneous
  Country: AR (occurrence: AR)
  Receive Date: 20190226
  Receipt Date: 20190226
  Transmission Date: 20190418
  Serious: Yes (Death, Life-Threatening, Hospitalization, Other)
  Sender: FDA-Public Use
  Company Number: AR-STRIDES ARCOLAB LIMITED-2019SP001787

PATIENT
  Age: 15 Year
  Sex: Female

DRUGS (7)
  1. PREDNISOLONE. [Suspect]
     Active Substance: PREDNISOLONE
     Dosage: UNK, DOSE REDUCED
     Route: 065
     Dates: start: 201301
  2. MYCOPHENOLATE MOFETIL. [Suspect]
     Active Substance: MYCOPHENOLATE MOFETIL
     Indication: LUNG TRANSPLANT
     Dosage: 8 MG/KG, BID
     Route: 065
     Dates: start: 201205, end: 201301
  3. MYCOPHENOLATE MOFETIL. [Suspect]
     Active Substance: MYCOPHENOLATE MOFETIL
     Dosage: UNK, DOSE REDUCED
     Route: 065
     Dates: start: 201301
  4. PREDNISOLONE. [Suspect]
     Active Substance: PREDNISOLONE
     Indication: LUNG TRANSPLANT
     Dosage: 0.3 MG/KG, DAILY
     Route: 065
     Dates: start: 201205, end: 201301
  5. METHYLPREDNISOLONE. [Suspect]
     Active Substance: METHYLPREDNISOLONE
     Indication: LUNG TRANSPLANT
     Dosage: 10 MG/KG, DAILY
     Route: 065
     Dates: start: 201205, end: 201205
  6. INSULIN [Concomitant]
     Active Substance: INSULIN NOS
     Indication: DIABETES MELLITUS
     Dosage: UNK
     Route: 065
  7. TACROLIMUS. [Suspect]
     Active Substance: TACROLIMUS
     Indication: LUNG TRANSPLANT
     Dosage: 12MG, DAILY
     Route: 065
     Dates: start: 201205, end: 201301

REACTIONS (11)
  - Pulmonary mass [Unknown]
  - Lymphadenopathy [Unknown]
  - Respiratory distress [Not Recovered/Not Resolved]
  - Pleural effusion [Unknown]
  - Kaposi^s sarcoma [Fatal]
  - Metastatic neoplasm [Fatal]
  - Human herpesvirus 8 infection [Fatal]
  - Lymphoproliferative disorder [Unknown]
  - Dyspnoea [Unknown]
  - Off label use [Unknown]
  - Tonsillar hypertrophy [Unknown]

NARRATIVE: CASE EVENT DATE: 201301
